FAERS Safety Report 10240524 (Version 1)
Quarter: 2014Q2

REPORT INFORMATION
  Report Type: Spontaneous
  Country: GB (occurrence: GB)
  Receive Date: 20140617
  Receipt Date: 20140617
  Transmission Date: 20141212
  Serious: Yes (Other)
  Sender: FDA-Public Use
  Company Number: PHFR2014GB004197

PATIENT
  Age: 55 Year
  Sex: Female

DRUGS (3)
  1. ACLASTA [Suspect]
     Indication: OSTEOPOROSIS
     Dosage: 5 MG, UNK
     Route: 042
     Dates: start: 20140502
  2. CALCIUM [Concomitant]
     Dosage: UNK UKN, UNK
  3. VITAMIN D3 [Concomitant]
     Dosage: UNK UKN, UNK

REACTIONS (13)
  - Sinus congestion [Recovering/Resolving]
  - Disturbance in attention [Recovering/Resolving]
  - Muscle contractions involuntary [Recovering/Resolving]
  - Migraine [Recovering/Resolving]
  - Joint effusion [Not Recovered/Not Resolved]
  - Joint swelling [Recovering/Resolving]
  - Influenza like illness [Recovering/Resolving]
  - Pain [Recovering/Resolving]
  - Headache [Recovering/Resolving]
  - Arthralgia [Recovering/Resolving]
  - Joint stiffness [Recovering/Resolving]
  - Myalgia [Recovering/Resolving]
  - Pyrexia [Recovering/Resolving]
